FAERS Safety Report 11120741 (Version 1)
Quarter: 2015Q2

REPORT INFORMATION
  Report Type: Spontaneous
  Country: US (occurrence: US)
  Receive Date: 20150519
  Receipt Date: 20150519
  Transmission Date: 20150821
  Serious: No
  Sender: FDA-Public Use
  Company Number: US-BAYER-2015-202695

PATIENT
  Age: 59 Year
  Sex: Male
  Weight: 98 kg

DRUGS (11)
  1. PROVIGIL [Concomitant]
     Active Substance: MODAFINIL
  2. OXYCODONE [Concomitant]
     Active Substance: OXYCODONE
  3. MELATONIN [Concomitant]
     Active Substance: MELATONIN
  4. VITAMIN D3 [Concomitant]
     Active Substance: CHOLECALCIFEROL
  5. CARBIDOPA W/LEVODOPA [Interacting]
     Active Substance: CARBIDOPA\LEVODOPA
     Indication: PARKINSON^S DISEASE
  6. MIRALAX [Suspect]
     Active Substance: POLYETHYLENE GLYCOL 3350
     Indication: CONSTIPATION
     Dosage: 1 DOSE, QD
     Route: 048
     Dates: start: 20150430, end: 20150505
  7. ASPIRIN LOW DOSE [Concomitant]
     Active Substance: ASPIRIN
  8. PREVACID [Concomitant]
     Active Substance: LANSOPRAZOLE
  9. LEVODOPA-CARBIDOPA [Interacting]
     Active Substance: CARBIDOPA\LEVODOPA
     Indication: PARKINSON^S DISEASE
  10. DOMPERIDON [Concomitant]
     Active Substance: DOMPERIDONE
  11. ZANTAC [Concomitant]
     Active Substance: RANITIDINE HYDROCHLORIDE

REACTIONS (1)
  - Drug interaction [Not Recovered/Not Resolved]

NARRATIVE: CASE EVENT DATE: 20150503
